FAERS Safety Report 25744946 (Version 1)
Quarter: 2025Q3

REPORT INFORMATION
  Report Type: Spontaneous
  Country: US (occurrence: US)
  Receive Date: 20250901
  Receipt Date: 20250901
  Transmission Date: 20251021
  Serious: Yes (Death, Hospitalization, Other)
  Sender: NOVITIUM PHARMA
  Company Number: US-NOVITIUMPHARMA-2025USNVP02183

PATIENT
  Age: 62 Year
  Sex: Male

DRUGS (2)
  1. DEXAMETHASONE [Suspect]
     Active Substance: DEXAMETHASONE
     Indication: Chronic lymphocytic leukaemia
  2. OBINUTUZUMAB [Concomitant]
     Active Substance: OBINUTUZUMAB
     Indication: Chronic lymphocytic leukaemia

REACTIONS (2)
  - Disseminated cryptococcosis [Fatal]
  - Aspergillus infection [Fatal]
